FAERS Safety Report 4372125-0 (Version None)
Quarter: 2004Q2

REPORT INFORMATION
  Report Type: 
  Country: None (occurrence: None)
  Receive Date: 20040602
  Receipt Date: 20040518
  Transmission Date: 20050107
  Serious: Yes (Death)
  Sender: FDA-Public Use
  Company Number: 2004AP00053

PATIENT
  Age: 66 Year
  Sex: Male

DRUGS (25)
  1. IRESSA [Suspect]
     Indication: LUNG SQUAMOUS CELL CARCINOMA STAGE UNSPECIFIED
     Dosage: 250 MG DAILY PO
     Route: 048
     Dates: start: 20031224, end: 20040101
  2. IRESSA [Suspect]
     Indication: NON-SMALL CELL LUNG CANCER
     Dosage: 250 MG DAILY PO
     Route: 048
     Dates: start: 20031224, end: 20040101
  3. CLINDAMYCIN [Concomitant]
  4. CARBENIN [Concomitant]
  5. ... [Concomitant]
  6. VOLTAREN [Concomitant]
  7. BROACT [Concomitant]
  8. CIPROXAN [Concomitant]
  9. DUROTEP [Concomitant]
  10. MAGLAX [Concomitant]
  11. PURSENNID [Concomitant]
  12. GRAMALIL [Concomitant]
  13. ASTHPHYLLIN [Concomitant]
  14. THEOLONG [Concomitant]
  15. NOVAMIN [Concomitant]
  16. PARIET [Concomitant]
  17. DIGOXIN [Concomitant]
  18. NAUZELIN [Concomitant]
  19. DIPYRIDAMOLE [Concomitant]
  20. CARBOPLATIN [Concomitant]
  21. TAXOL [Concomitant]
  22. TAXOTERE [Concomitant]
  23. RADIOTHERAPY [Concomitant]
  24. CISPLATIN [Concomitant]
  25. VINORELBINE TARTRATE [Concomitant]

REACTIONS (2)
  - PNEUMONIA [None]
  - SEPTIC SHOCK [None]
